FAERS Safety Report 9856460 (Version 2)
Quarter: 2014Q1

REPORT INFORMATION
  Report Type: Spontaneous
  Country: SG (occurrence: SG)
  Receive Date: 20140130
  Receipt Date: 20140207
  Transmission Date: 20141002
  Serious: Yes (Death, Other)
  Sender: FDA-Public Use
  Company Number: SG-JNJFOC-20140113278

PATIENT
  Sex: 0

DRUGS (17)
  1. DOXORUBICIN [Suspect]
     Indication: LYMPHOMA
     Route: 042
  2. BENDAMUSTINE [Suspect]
     Indication: LYMPHOMA
     Route: 065
  3. CYCLOPHOSPHAMIDE [Suspect]
     Indication: LYMPHOMA
     Dosage: HYPERFRACTIONATED
     Route: 065
  4. CYCLOPHOSPHAMIDE [Suspect]
     Indication: LYMPHOMA
     Route: 065
  5. RITUXIMAB [Suspect]
     Indication: LYMPHOMA
     Route: 065
  6. VINCRISTINE [Suspect]
     Indication: LYMPHOMA
     Route: 065
  7. PREDNISONE [Suspect]
     Indication: LYMPHOMA
     Route: 065
  8. ETOPOSIDE [Suspect]
     Indication: LYMPHOMA
     Route: 065
  9. DEXAMETHASONE [Suspect]
     Indication: LYMPHOMA
     Route: 065
  10. METHYLPREDNISOLONE [Suspect]
     Indication: LYMPHOMA
     Route: 065
  11. CYTARABINE [Suspect]
     Indication: LYMPHOMA
     Route: 065
  12. CISPLATIN [Suspect]
     Indication: LYMPHOMA
     Route: 065
  13. IFOSFAMIDE [Suspect]
     Indication: LYMPHOMA
     Route: 065
  14. CARBOPLATIN [Suspect]
     Indication: LYMPHOMA
     Route: 065
  15. BLEOMYCIN [Suspect]
     Indication: LYMPHOMA
     Route: 065
  16. VINBLASTINE [Suspect]
     Indication: LYMPHOMA
     Route: 065
  17. DACARBAZINE [Suspect]
     Indication: LYMPHOMA
     Route: 065

REACTIONS (1)
  - Cytomegalovirus infection [Fatal]
